FAERS Safety Report 4979470-6 (Version None)
Quarter: 2006Q2

REPORT INFORMATION
  Report Type: 
  Country: None (occurrence: None)
  Receive Date: 20060421
  Receipt Date: 20030605
  Transmission Date: 20061013
  Serious: Yes (Hospitalization, Disabling, Other)
  Sender: FDA-Public Use
  Company Number: US-MERCK-0306USA00729

PATIENT
  Age: 60 Year
  Sex: Male
  Weight: 93 kg

DRUGS (8)
  1. VIOXX [Suspect]
     Indication: BACK PAIN
     Route: 048
     Dates: start: 20001201, end: 20010820
  2. VASOTEC [Concomitant]
     Route: 048
  3. LIPITOR [Concomitant]
     Route: 065
  4. ASPIRIN [Concomitant]
     Route: 065
  5. VERELAN [Concomitant]
     Route: 065
  6. NITROSTAT [Concomitant]
     Indication: CHEST PAIN
     Route: 065
  7. ADVIL [Concomitant]
     Indication: PAIN
     Route: 065
  8. ALEVE [Concomitant]
     Indication: PAIN
     Route: 065

REACTIONS (42)
  - ACNE [None]
  - ANGINA PECTORIS [None]
  - ANXIETY [None]
  - ARTERIOSCLEROSIS CORONARY ARTERY [None]
  - ARTHRALGIA [None]
  - ASPARTATE AMINOTRANSFERASE INCREASED [None]
  - ASPIRATION [None]
  - ATRIAL FLUTTER [None]
  - BASAL GANGLION DEGENERATION [None]
  - BENIGN PROSTATIC HYPERPLASIA [None]
  - BLOOD PRESSURE INCREASED [None]
  - CARDIAC FAILURE CONGESTIVE [None]
  - CAROTID ARTERY OCCLUSION [None]
  - CAROTID ARTERY STENOSIS [None]
  - CEREBROVASCULAR ACCIDENT [None]
  - CONFUSIONAL STATE [None]
  - CONVULSION [None]
  - CORONARY ARTERY OCCLUSION [None]
  - CYST [None]
  - DEPRESSED MOOD [None]
  - DEPRESSION [None]
  - DEVICE FAILURE [None]
  - DYSPHAGIA [None]
  - DYSTROPHIC CALCIFICATION [None]
  - EAR DISORDER [None]
  - FALL [None]
  - HEADACHE [None]
  - HIATUS HERNIA [None]
  - HYPERTENSION [None]
  - MIDDLE INSOMNIA [None]
  - MYOCARDIAL INFARCTION [None]
  - NECROSIS [None]
  - NOCTURIA [None]
  - PALPITATIONS [None]
  - RASH [None]
  - SCROTAL MASS [None]
  - SINUS BRADYCARDIA [None]
  - SUICIDAL IDEATION [None]
  - TEARFULNESS [None]
  - URINARY RETENTION [None]
  - VENTRICULAR DYSFUNCTION [None]
  - VERTIGO [None]
